FAERS Safety Report 6484984-6 (Version None)
Quarter: 2009Q4

REPORT INFORMATION
  Report Type: 
  Country: None (occurrence: None)
  Receive Date: 20091203
  Receipt Date: 20091119
  Transmission Date: 20100525
  Serious: Yes (Other)
  Sender: FDA-Public Use
  Company Number: MOZO-1000269

PATIENT
  Age: 66 Year
  Weight: 55.5 kg

DRUGS (6)
  1. PLERIXAFOR (PLERIXAFOR) SOLUTION FOR INJECTION [Suspect]
     Indication: B-CELL LYMPHOMA
     Dosage: 12960 MCG, QD, SUBCUTANEOUS
     Route: 058
     Dates: start: 20090419, end: 20090422
  2. PLERIXAFOR (PLERIXAFOR) SOLUTION FOR INJECTION [Suspect]
     Indication: HAEMATOPOIETIC STEM CELL MOBILISATION
     Dosage: 12960 MCG, QD, SUBCUTANEOUS
     Route: 058
     Dates: start: 20090419, end: 20090422
  3. GRANULOCYTE COLONY STIMULATING FACTOR (GRANULOCYTE COLONY STIMULATING [Concomitant]
  4. POSACONAZOLE [Concomitant]
  5. ACICLOVIR (ACICLOVIR SODIUM) [Concomitant]
  6. LANSOPRAZOLE [Concomitant]

REACTIONS (11)
  - BETA HAEMOLYTIC STREPTOCOCCAL INFECTION [None]
  - BLOOD STEM CELL TRANSPLANT FAILURE [None]
  - BONE MARROW FAILURE [None]
  - BREAST CANCER RECURRENT [None]
  - CULTURE STOOL POSITIVE [None]
  - DIFFUSE LARGE B-CELL LYMPHOMA [None]
  - GASTROENTERITIS NOROVIRUS [None]
  - LUNG CONSOLIDATION [None]
  - MUCOSAL INFLAMMATION [None]
  - RHINITIS [None]
  - URINARY TRACT INFECTION [None]
